FAERS Safety Report 17828297 (Version 1)
Quarter: 2020Q2

REPORT INFORMATION
  Report Type: Spontaneous
  Country: US (occurrence: US)
  Receive Date: 20200527
  Receipt Date: 20200527
  Transmission Date: 20200714
  Serious: Yes (Other)
  Sender: FDA-Public Use
  Company Number: US-TEVA-2020-US-1239827

PATIENT
  Age: 64 Year
  Sex: Female
  Weight: 70.31 kg

DRUGS (2)
  1. TOPROL XL [Concomitant]
     Active Substance: METOPROLOL SUCCINATE
  2. PROAIR RESPICLICK [Suspect]
     Active Substance: ALBUTEROL SULFATE
     Route: 065

REACTIONS (2)
  - Drug ineffective [Unknown]
  - Device malfunction [Unknown]

NARRATIVE: CASE EVENT DATE: 20200102
